FAERS Safety Report 17019282 (Version 2)
Quarter: 2019Q4

REPORT INFORMATION
  Report Type: Spontaneous
  Country: US (occurrence: US)
  Receive Date: 20191112
  Receipt Date: 20191202
  Transmission Date: 20200122
  Serious: No
  Sender: FDA-Public Use
  Company Number: US-LUPIN PHARMACEUTICALS INC.-2019-07085

PATIENT
  Age: 39 Year
  Sex: Female
  Weight: 63.49 kg

DRUGS (2)
  1. ESCITALOPRAM OXALATE TABLETS USP, 5 MG [Suspect]
     Active Substance: ESCITALOPRAM OXALATE
     Indication: ANXIETY
     Dosage: 5 MILLIGRAM
     Route: 048
     Dates: start: 20190819
  2. ESCITALOPRAM OXALATE TABLETS USP, 5 MG [Suspect]
     Active Substance: ESCITALOPRAM OXALATE
     Dosage: 5 MILLIGRAM, QD
     Route: 048
     Dates: start: 20191014

REACTIONS (3)
  - Poor quality product administered [Unknown]
  - Therapeutic product effect incomplete [Unknown]
  - Product physical issue [Unknown]

NARRATIVE: CASE EVENT DATE: 20191016
